FAERS Safety Report 19870378 (Version 2)
Quarter: 2021Q4

REPORT INFORMATION
  Report Type: Spontaneous
  Country: US (occurrence: US)
  Receive Date: 20210923
  Receipt Date: 20211005
  Transmission Date: 20220303
  Serious: Yes (Other)
  Sender: FDA-Public Use
  Company Number: US-HIKMA PHARMACEUTICALS USA INC.-US-H14001-21-04039

PATIENT
  Age: 48 Year
  Sex: Male

DRUGS (4)
  1. PREDNISONE [Suspect]
     Active Substance: PREDNISONE
     Indication: Thrombocytopenia
     Route: 065
  2. IMMUNOGLOBULIN [Concomitant]
     Indication: Thrombocytopenia
     Route: 041
  3. ARGATROBAN [Concomitant]
     Active Substance: ARGATROBAN
     Indication: Thrombocytopenia
     Dosage: UNKNOWN
     Route: 041
  4. APIXABAN [Concomitant]
     Active Substance: APIXABAN
     Indication: Thrombocytopenia
     Route: 065

REACTIONS (1)
  - Thrombocytopenia [Recovering/Resolving]
